FAERS Safety Report 5819979-6 (Version None)
Quarter: 2008Q3

REPORT INFORMATION
  Report Type: 
  Country: None (occurrence: None)
  Receive Date: 20080721
  Receipt Date: 20080707
  Transmission Date: 20090109
  Serious: Yes (Hospitalization)
  Sender: FDA-Public Use
  Company Number: 2008AL004108

PATIENT
  Age: 65 Year
  Sex: Male

DRUGS (1)
  1. DIGOXIN [Suspect]
     Indication: CARDIAC DISORDER
     Dosage: 0.25MG DAILY PO, SEVERAL YEARS

REACTIONS (3)
  - ARRHYTHMIA [None]
  - DIZZINESS [None]
  - DRUG LEVEL INCREASED [None]
